FAERS Safety Report 8050667-4 (Version None)
Quarter: 2012Q1

REPORT INFORMATION
  Report Type: 
  Country: None (occurrence: None)
  Receive Date: 20120117
  Receipt Date: 20120117
  Transmission Date: 20120608
  Serious: Yes (Other)
  Sender: FDA-Public Use
  Company Number: None

PATIENT
  Sex: Female

DRUGS (2)
  1. WELLBUTRIN [Concomitant]
     Route: 048
  2. TOPIRAMATE [Suspect]
     Indication: FIBROMYALGIA
     Dosage: ONE TABLET
     Route: 048
     Dates: start: 20120104, end: 20120109

REACTIONS (15)
  - PAIN IN EXTREMITY [None]
  - SYNCOPE [None]
  - HYPERSOMNIA [None]
  - FATIGUE [None]
  - DECREASED APPETITE [None]
  - BALANCE DISORDER [None]
  - ASTHENIA [None]
  - ABDOMINAL PAIN UPPER [None]
  - FEELING ABNORMAL [None]
  - DIZZINESS [None]
  - MEMORY IMPAIRMENT [None]
  - DIARRHOEA [None]
  - TREMOR [None]
  - IMPAIRED DRIVING ABILITY [None]
  - DYSGEUSIA [None]
